FAERS Safety Report 9898382 (Version 2)
Quarter: 2014Q1

REPORT INFORMATION
  Report Type: Report from Study
  Country: JP (occurrence: JP)
  Receive Date: 20140214
  Receipt Date: 20140304
  Transmission Date: 20141002
  Serious: Yes (Other)
  Sender: FDA-Public Use
  Company Number: JP-ELI_LILLY_AND_COMPANY-JP201402002514

PATIENT
  Age: 15 Year
  Sex: Female

DRUGS (4)
  1. TADALAFIL [Suspect]
     Indication: PULMONARY HYPERTENSION
     Route: 048
  2. BERAPROST [Concomitant]
     Indication: PULMONARY HYPERTENSION
  3. BOSENTAN [Concomitant]
     Indication: PULMONARY HYPERTENSION
  4. SILDENAFIL [Concomitant]
     Indication: PULMONARY HYPERTENSION

REACTIONS (2)
  - Pulmonary haemorrhage [Unknown]
  - Myalgia [Unknown]
